FAERS Safety Report 15346696 (Version 1)
Quarter: 2018Q3

REPORT INFORMATION
  Report Type: Report from Study
  Country: None (occurrence: US)
  Receive Date: 20180904
  Receipt Date: 20180904
  Transmission Date: 20181010
  Serious: No
  Sender: FDA-Public Use
  Company Number: US-BIOVITRUM-2017US0915

PATIENT
  Age: 49 Year
  Sex: Female

DRUGS (1)
  1. KINERET [Suspect]
     Active Substance: ANAKINRA
     Route: 058
     Dates: start: 20170719, end: 20171005

REACTIONS (7)
  - Hypersensitivity [Unknown]
  - Injection site erythema [Unknown]
  - Nausea [Unknown]
  - Injection site warmth [Unknown]
  - Pain [Unknown]
  - Vomiting [Unknown]
  - Injection site pain [Unknown]
